FAERS Safety Report 11719854 (Version 1)
Quarter: 2015Q4

REPORT INFORMATION
  Report Type: Spontaneous
  Country: US (occurrence: US)
  Receive Date: 20151110
  Receipt Date: 20151110
  Transmission Date: 20160304
  Serious: Yes (Death, Life-Threatening, Hospitalization, Other)
  Sender: FDA-Public Use
  Company Number: US-OTSUKA-US-2015-11065

PATIENT

DRUGS (1)
  1. DACOGEN [Suspect]
     Active Substance: DECITABINE
     Indication: ACUTE MYELOID LEUKAEMIA
     Dosage: 20 MG/M2, 20 MG/M2, OVER 60 MINUTES ON DAYS 1-10 IN A 28 DAY CYCLE WITH A MAXIMUM OF 4 CYCLES
     Route: 042
     Dates: start: 20120317, end: 20120915

REACTIONS (3)
  - Sepsis [Fatal]
  - Neutrophil count decreased [Unknown]
  - Lung infection [Unknown]

NARRATIVE: CASE EVENT DATE: 20120917
